FAERS Safety Report 4883859-3 (Version None)
Quarter: 2006Q1

REPORT INFORMATION
  Report Type: 
  Country: None (occurrence: None)
  Receive Date: 20060113
  Receipt Date: 20051227
  Transmission Date: 20060701
  Serious: Yes (Other)
  Sender: FDA-Public Use
  Company Number: US200512004214

PATIENT
  Age: 49 Year
  Sex: Male

DRUGS (8)
  1. HUMALOG [Suspect]
     Indication: DIABETES MELLITUS INSULIN-DEPENDENT
     Dates: start: 20051220
  2. HUMALOG [Suspect]
     Indication: DIABETES MELLITUS INSULIN-DEPENDENT
     Dates: start: 20010101, end: 20051220
  3. ILETIN [Suspect]
     Indication: DIABETES MELLITUS INSULIN-DEPENDENT
     Dates: start: 19660101, end: 19800101
  4. ILETIN [Suspect]
     Indication: DIABETES MELLITUS INSULIN-DEPENDENT
     Dates: start: 19960101, end: 19800101
  5. ILETIN [Suspect]
     Dates: start: 19800101, end: 19870101
  6. ILETIN [Suspect]
     Indication: DIABETES MELLITUS INSULIN-DEPENDENT
     Dates: start: 19800101, end: 19870101
  7. HUMULIN R [Suspect]
     Indication: DIABETES MELLITUS INSULIN-DEPENDENT
     Dates: start: 19870101, end: 20010101
  8. HUMULIN UTRALENTE (HUMAN INSULIN (RDNA ORIGIN) ULTRALENTE UNKNOWN FORM [Suspect]
     Indication: DIABETES MELLITUS INSULIN-DEPENDENT
     Dates: start: 19880101, end: 20040101

REACTIONS (7)
  - BLINDNESS [None]
  - EYE DISORDER [None]
  - EYE HAEMORRHAGE [None]
  - EYE INJURY [None]
  - PHARMACEUTICAL PRODUCT COMPLAINT [None]
  - RETINAL ANEURYSM [None]
  - VISUAL FIELD DEFECT [None]
